FAERS Safety Report 23617226 (Version 1)
Quarter: 2024Q1

REPORT INFORMATION
  Report Type: Spontaneous
  Country: US (occurrence: US)
  Receive Date: 20240311
  Receipt Date: 20240311
  Transmission Date: 20240410
  Serious: No
  Sender: FDA-Public Use
  Company Number: US-Covis Pharma GmbH-2024COV00224

PATIENT
  Age: 71 Year
  Sex: Male

DRUGS (3)
  1. RILUTEK [Suspect]
     Active Substance: RILUZOLE
     Route: 048
  2. RELYVRIO [Suspect]
     Active Substance: SODIUM PHENYLBUTYRATE\TAURURSODIOL
     Indication: Amyotrophic lateral sclerosis
     Dosage: 1 DOSAGE FORM 1 SACHET ONCE DAILY FOR FIRST 3 WEEKS, THEN 1 SACHET TWICE DAILY., 2/DAYS
     Route: 048
  3. RELYVRIO [Suspect]
     Active Substance: SODIUM PHENYLBUTYRATE\TAURURSODIOL
     Dosage: 1 DOSAGE FORM 1 SACHET ONCE DAILY FOR FIRST 3 WEEKS, THEN 1 SACHET TWICE DAILY., 2/DAYS
     Route: 048

REACTIONS (3)
  - Headache [Unknown]
  - Malaise [Unknown]
  - Drug intolerance [Unknown]
